FAERS Safety Report 5772594-5 (Version None)
Quarter: 2008Q2

REPORT INFORMATION
  Report Type: 
  Country: None (occurrence: None)
  Receive Date: 20080601
  Receipt Date: 20080303
  Transmission Date: 20081010
  Serious: No
  Sender: FDA-Public Use
  Company Number: US200803000588

PATIENT
  Age: 67 Year
  Sex: Female
  Weight: 103.4 kg

DRUGS (5)
  1. BYETTA [Suspect]
     Indication: TYPE 2 DIABETES MELLITUS
     Dosage: 5 UG, 2/D, SUBCUTANEOUS
     Route: 058
     Dates: start: 20080108
  2. METFORMIN HCL [Concomitant]
  3. LANTUS [Concomitant]
  4. PRANDIN /USA/ (REPAGLINIDE) [Concomitant]
  5. OMEPRAZOLE [Concomitant]

REACTIONS (5)
  - BLOOD GLUCOSE DECREASED [None]
  - NAUSEA [None]
  - REGURGITATION [None]
  - VOMITING [None]
  - WEIGHT DECREASED [None]
